FAERS Safety Report 6532083-7 (Version None)
Quarter: 2009Q4

REPORT INFORMATION
  Report Type: 
  Country: None (occurrence: None)
  Receive Date: 20091228
  Receipt Date: 20090306
  Transmission Date: 20100525
  Serious: Yes (Hospitalization, Other)
  Sender: FDA-Public Use
  Company Number: 20090070

PATIENT
  Sex: Female

DRUGS (1)
  1. VENOFER [Suspect]
     Indication: RENAL FAILURE
     Dosage: 100 MG INTRAVENOUS
     Route: 042
     Dates: start: 20090303

REACTIONS (1)
  - HYPERSENSITIVITY [None]
